FAERS Safety Report 7430129-5 (Version None)
Quarter: 2011Q2

REPORT INFORMATION
  Report Type: 
  Country: None (occurrence: None)
  Receive Date: 20110421
  Receipt Date: 20100803
  Transmission Date: 20111010
  Serious: No
  Sender: FDA-Public Use
  Company Number: US-ASTRAZENECA-2010SE32577

PATIENT
  Age: 587 Month
  Sex: Female
  Weight: 71.2 kg

DRUGS (18)
  1. ALDACTONE [Concomitant]
  2. ORACEA [Concomitant]
  3. NEXIUM [Concomitant]
  4. SYNTHROID [Concomitant]
     Indication: THYROID DISORDER
  5. TRICOR [Concomitant]
  6. SULFASALAZINE [Concomitant]
  7. DIOVAN HCT [Concomitant]
     Indication: HYPERTENSION
  8. TOPROL-XL [Suspect]
     Indication: HYPERTENSION
     Route: 048
     Dates: start: 20070101
  9. SINGULAIR [Concomitant]
     Indication: ASTHMA
  10. PULMICORT NEBULIZER [Concomitant]
  11. PAXIL [Concomitant]
  12. TOPROL-XL [Suspect]
     Route: 048
  13. CRESTOR [Concomitant]
  14. RESTORIL [Concomitant]
  15. DIOVAN [Concomitant]
  16. ALLEGRA [Concomitant]
     Indication: ASTHMA
  17. ADVAIR HFA [Concomitant]
     Indication: ASTHMA
  18. ZANAFLEX [Concomitant]

REACTIONS (9)
  - TACHYCARDIA [None]
  - LARYNGEAL ULCERATION [None]
  - DYSLIPIDAEMIA [None]
  - NAIL DISCOLOURATION [None]
  - MUSCLE SPASMS [None]
  - COUGH [None]
  - POST-TRAUMATIC STRESS DISORDER [None]
  - PALPITATIONS [None]
  - ANKYLOSING SPONDYLITIS [None]
